FAERS Safety Report 24248794 (Version 1)
Quarter: 2024Q3

REPORT INFORMATION
  Report Type: Spontaneous
  Country: JP (occurrence: JP)
  Receive Date: 20240826
  Receipt Date: 20240826
  Transmission Date: 20241016
  Serious: Yes (Death, Life-Threatening)
  Sender: JOHNSON AND JOHNSON
  Company Number: JP-JNJFOC-20240711881

PATIENT
  Age: 4 Decade
  Sex: Female

DRUGS (1)
  1. OPSUMIT [Suspect]
     Active Substance: MACITENTAN
     Indication: Pulmonary arterial hypertension
     Route: 048
     Dates: start: 20230208, end: 20240809

REACTIONS (4)
  - Right-to-left cardiac shunt [Fatal]
  - Physical deconditioning [Not Recovered/Not Resolved]
  - Haemoptysis [Not Recovered/Not Resolved]
  - Melaena [Unknown]
